FAERS Safety Report 8405403 (Version 5)
Quarter: 2013Q4

REPORT INFORMATION
  Report Type: Spontaneous
  Country: US (occurrence: US)
  Receive Date: 20120214
  Receipt Date: 20131121
  Transmission Date: 20140711
  Serious: Yes (Hospitalization)
  Sender: FDA-Public Use
  Company Number: US-B.I. PHARMACEUTICALS,INC./RIDGEFIELD-2012-BP-02517BP

PATIENT
  Sex: Male
  Weight: 72.57 kg

DRUGS (12)
  1. PRADAXA [Suspect]
     Indication: ANTICOAGULANT THERAPY
     Dosage: 150 MG
     Dates: start: 20110421, end: 20110909
  2. ALLOPURINOL [Concomitant]
     Dosage: 100 MG
     Dates: start: 2010, end: 2012
  3. ARANESP [Concomitant]
     Route: 051
     Dates: start: 1998, end: 2013
  4. CARVEDILOL [Concomitant]
     Dates: start: 2011, end: 2012
  5. FISH OIL [Concomitant]
     Dosage: 2000 MG
     Dates: start: 2010, end: 2012
  6. GLIPIZIDE [Concomitant]
     Dosage: 10 MG
     Dates: start: 2010, end: 2012
  7. LANTUS [Concomitant]
     Dosage: 10 MG
     Dates: start: 1998, end: 2013
  8. SIMVASTATIN [Concomitant]
     Dosage: 5 MG
     Dates: start: 2011, end: 2012
  9. TRILIPIX [Concomitant]
     Dates: start: 2010, end: 2012
  10. VOLTAREN [Concomitant]
     Dates: start: 2010, end: 2012
  11. ASPIRIN [Concomitant]
     Dates: start: 2000, end: 2012
  12. FENOFIBRATE [Concomitant]

REACTIONS (5)
  - Upper gastrointestinal haemorrhage [Unknown]
  - Anaemia [Unknown]
  - Acute myocardial infarction [Unknown]
  - Coagulopathy [Unknown]
  - Unevaluable event [Unknown]
